FAERS Safety Report 9735809 (Version 2)
Quarter: 2015Q3

REPORT INFORMATION
  Report Type: Spontaneous
  Country: US (occurrence: US)
  Receive Date: 20131206
  Receipt Date: 20150804
  Transmission Date: 20151125
  Serious: No
  Sender: FDA-Public Use
  Company Number: US-GILEAD-2009-0023731

PATIENT
  Age: 38 Year
  Sex: Female
  Weight: 60.78 kg

DRUGS (8)
  1. LETAIRIS [Suspect]
     Active Substance: AMBRISENTAN
     Indication: PULMONARY ARTERIAL HYPERTENSION
     Route: 048
     Dates: start: 20081125
  2. LASIX [Concomitant]
     Active Substance: FUROSEMIDE
  3. MULTIVITAMIN [Concomitant]
     Active Substance: VITAMINS
  4. REVATIO [Concomitant]
     Active Substance: SILDENAFIL CITRATE
  5. LEVOTHYROXINE. [Concomitant]
     Active Substance: LEVOTHYROXINE
  6. COUMADIN [Concomitant]
     Active Substance: WARFARIN SODIUM
  7. SPIRONOLACTONE. [Concomitant]
     Active Substance: SPIRONOLACTONE
  8. ARGININE [Concomitant]
     Active Substance: ARGININE

REACTIONS (1)
  - Nasal congestion [Unknown]
